FAERS Safety Report 7819192-7 (Version None)
Quarter: 2011Q4

REPORT INFORMATION
  Report Type: 
  Country: None (occurrence: None)
  Receive Date: 20111012
  Receipt Date: 20110929
  Transmission Date: 20120403
  Serious: Yes (Hospitalization)
  Sender: FDA-Public Use
  Company Number: 2011MA014728

PATIENT
  Age: 26 Year
  Sex: Male

DRUGS (2)
  1. FEVERALL [Suspect]
     Indication: PYREXIA
     Dosage: PO
     Route: 048
     Dates: start: 20080620, end: 20080623
  2. CIPROFLOXACIN HYDROCHLORIDE [Suspect]
     Indication: PYREXIA
     Dosage: PO
     Route: 048
     Dates: start: 20080620, end: 20080623

REACTIONS (1)
  - HEPATITIS [None]
